FAERS Safety Report 4691001-7 (Version None)
Quarter: 2005Q2

REPORT INFORMATION
  Report Type: 
  Country: None (occurrence: None)
  Receive Date: 20050615
  Receipt Date: 20050531
  Transmission Date: 20051028
  Serious: Yes (Hospitalization)
  Sender: FDA-Public Use
  Company Number: JP-JNJFOC-20050601202

PATIENT
  Sex: Male

DRUGS (10)
  1. CRAVIT [Suspect]
     Route: 050
     Dates: start: 20050512, end: 20050519
  2. LASIX [Concomitant]
     Route: 050
     Dates: start: 20050408
  3. LEBENIN [Concomitant]
     Route: 050
     Dates: start: 20050503
  4. LEBENIN [Concomitant]
     Route: 050
     Dates: start: 20050503
  5. LEBENIN [Concomitant]
     Indication: GASTROINTESTINAL DISORDER
     Route: 050
     Dates: start: 20050503
  6. MARZULENE [Concomitant]
     Route: 050
     Dates: start: 20050509
  7. BIOFERMIN [Concomitant]
     Route: 050
     Dates: start: 20050512
  8. BIOFERMIN [Concomitant]
     Route: 050
     Dates: start: 20050512
  9. BIOFERMIN [Concomitant]
     Route: 050
     Dates: start: 20050512
  10. EPOGIN [Concomitant]
     Indication: NEPHROGENIC ANAEMIA
     Route: 058
     Dates: start: 20050321

REACTIONS (4)
  - CONVULSION [None]
  - DEPRESSED LEVEL OF CONSCIOUSNESS [None]
  - OVERDOSE [None]
  - RENAL FAILURE ACUTE [None]
